FAERS Safety Report 25906499 (Version 1)
Quarter: 2025Q4

REPORT INFORMATION
  Report Type: Spontaneous
  Country: US (occurrence: US)
  Receive Date: 20251010
  Receipt Date: 20251010
  Transmission Date: 20260117
  Serious: No
  Sender: MERCK SHARP & DOHME LLC
  Company Number: US-009507513-2337189

PATIENT
  Age: 44 Year

DRUGS (1)
  1. ERTAPENEM [Suspect]
     Active Substance: ERTAPENEM
     Dosage: UNK, STRENGTH: 1G VIAL
     Route: 065

REACTIONS (1)
  - Drug hypersensitivity [Unknown]
